FAERS Safety Report 7847056-1 (Version None)
Quarter: 2011Q4

REPORT INFORMATION
  Report Type: 
  Country: None (occurrence: None)
  Receive Date: 20111025
  Receipt Date: 20111013
  Transmission Date: 20120403
  Serious: Yes (Other)
  Sender: FDA-Public Use
  Company Number: JP-ALLERGAN-1113894US

PATIENT
  Age: 72 Year
  Sex: Female

DRUGS (3)
  1. LUMIGAN [Suspect]
     Indication: OPEN ANGLE GLAUCOMA
     Dosage: 1 GTT, QD
     Route: 047
     Dates: start: 20100921, end: 20110404
  2. TIMOLOL MALEATE [Suspect]
     Indication: GLAUCOMA
     Dosage: 1 GTT, BID
     Route: 047
     Dates: start: 20110308, end: 20110404
  3. AZOPT [Concomitant]
     Dosage: UNK

REACTIONS (4)
  - INTRAOCULAR PRESSURE INCREASED [None]
  - DRUG INEFFECTIVE [None]
  - CORNEAL EROSION [None]
  - FOREIGN BODY SENSATION IN EYES [None]
